FAERS Safety Report 8356977 (Version 2)
Quarter: 2012Q4

REPORT INFORMATION
  Report Type: 
  Country: US (occurrence: US)
  Receive Date: 20120126
  Receipt Date: 20121218
  Transmission Date: 20130627
  Serious: Yes (Other)
  Sender: FDA-Public Use
  Company Number: US-ASTRAZENECA-2012SE03776

PATIENT
  Age: 57 Year
  Sex: Male

DRUGS (2)
  1. SEROQUEL [Suspect]
     Indication: DEPRESSION
     Route: 048
  2. CRESTOR [Suspect]
     Route: 048

REACTIONS (2)
  - Back injury [Unknown]
  - Diabetes mellitus [Unknown]
